FAERS Safety Report 18611654 (Version 1)
Quarter: 2020Q4

REPORT INFORMATION
  Report Type: Spontaneous
  Country: US (occurrence: US)
  Receive Date: 20201205
  Receipt Date: 20201205
  Transmission Date: 20210114
  Serious: Yes (Death)
  Sender: FDA-Public Use
  Company Number: None

PATIENT
  Age: 88 Year
  Sex: Male
  Weight: 101 kg

DRUGS (1)
  1. REGN10987, REGN10933 (CASIRIVIMAB AND IMDEVIMAB) [Suspect]
     Active Substance: CASIRIVIMAB\IMDEVIMAB
     Indication: COVID-19
     Route: 042
     Dates: start: 20201204, end: 20201204

REACTIONS (1)
  - Death [None]

NARRATIVE: CASE EVENT DATE: 20201204
